FAERS Safety Report 23693484 (Version 1)
Quarter: 2024Q2

REPORT INFORMATION
  Report Type: Spontaneous
  Country: CN (occurrence: None)
  Receive Date: 20240401
  Receipt Date: 20240401
  Transmission Date: 20240716
  Serious: Yes (Life-Threatening)
  Sender: FDA-Public Use
  Company Number: 2024A076916

PATIENT
  Age: 13364 Day
  Sex: Female

DRUGS (12)
  1. BUDESONIDE [Suspect]
     Active Substance: BUDESONIDE
     Indication: Undifferentiated connective tissue disease
     Route: 055
     Dates: start: 20200706, end: 20200707
  2. BUDESONIDE [Suspect]
     Active Substance: BUDESONIDE
     Indication: Systemic lupus erythematosus
     Route: 055
     Dates: start: 20200706, end: 20200707
  3. BUDESONIDE [Suspect]
     Active Substance: BUDESONIDE
     Indication: Lung disorder
     Route: 055
     Dates: start: 20200706, end: 20200707
  4. BUDESONIDE [Suspect]
     Active Substance: BUDESONIDE
     Indication: Cystic lung disease
     Route: 055
     Dates: start: 20200706, end: 20200707
  5. ACETYLCYSTEINE [Suspect]
     Active Substance: ACETYLCYSTEINE
     Indication: Undifferentiated connective tissue disease
     Route: 055
     Dates: start: 20200706, end: 20200707
  6. ACETYLCYSTEINE [Suspect]
     Active Substance: ACETYLCYSTEINE
     Indication: Systemic lupus erythematosus
     Route: 055
     Dates: start: 20200706, end: 20200707
  7. ACETYLCYSTEINE [Suspect]
     Active Substance: ACETYLCYSTEINE
     Indication: Lung disorder
     Route: 055
     Dates: start: 20200706, end: 20200707
  8. ACETYLCYSTEINE [Suspect]
     Active Substance: ACETYLCYSTEINE
     Indication: Cystic lung disease
     Route: 055
     Dates: start: 20200706, end: 20200707
  9. IPRATROPIUM BROMIDE [Suspect]
     Active Substance: IPRATROPIUM BROMIDE\IPRATROPIUM BROMIDE ANHYDROUS
     Indication: Undifferentiated connective tissue disease
     Route: 055
     Dates: start: 20200706, end: 20200707
  10. IPRATROPIUM BROMIDE [Suspect]
     Active Substance: IPRATROPIUM BROMIDE\IPRATROPIUM BROMIDE ANHYDROUS
     Indication: Systemic lupus erythematosus
     Route: 055
     Dates: start: 20200706, end: 20200707
  11. IPRATROPIUM BROMIDE [Suspect]
     Active Substance: IPRATROPIUM BROMIDE\IPRATROPIUM BROMIDE ANHYDROUS
     Indication: Lung disorder
     Route: 055
     Dates: start: 20200706, end: 20200707
  12. IPRATROPIUM BROMIDE [Suspect]
     Active Substance: IPRATROPIUM BROMIDE\IPRATROPIUM BROMIDE ANHYDROUS
     Indication: Cystic lung disease
     Route: 055
     Dates: start: 20200706, end: 20200707

REACTIONS (5)
  - Dyspnoea [Recovered/Resolved]
  - Palpitations [Recovered/Resolved]
  - Chest discomfort [Recovered/Resolved]
  - Hyperhidrosis [Recovered/Resolved]
  - Mental disorder [Recovered/Resolved]

NARRATIVE: CASE EVENT DATE: 20200707
